FAERS Safety Report 10194825 (Version 1)
Quarter: 2014Q2

REPORT INFORMATION
  Report Type: Spontaneous
  Country: CN (occurrence: CN)
  Receive Date: 20140526
  Receipt Date: 20140526
  Transmission Date: 20141212
  Serious: Yes (Other)
  Sender: FDA-Public Use
  Company Number: CN-PFIZER INC-2014141153

PATIENT
  Age: 38 Year
  Sex: Female
  Weight: 57 kg

DRUGS (13)
  1. SOLU-MEDROL [Suspect]
     Indication: IMMUNOSUPPRESSION
     Dosage: 120 MG, 1X/DAY
     Route: 041
     Dates: start: 20130303, end: 20130313
  2. SOLU-MEDROL [Suspect]
     Dosage: 40 MG, 1X/DAY
     Route: 041
     Dates: start: 20130313, end: 20130319
  3. MEDROL [Suspect]
     Indication: IMMUNOSUPPRESSION
     Dosage: 24 MG, 1X/DAY
     Route: 048
     Dates: start: 20130320, end: 20130327
  4. MEDROL [Suspect]
     Dosage: 20 MG, 1X/DAY
     Route: 048
     Dates: start: 20130327, end: 20130403
  5. MEDROL [Suspect]
     Dosage: 16 MG, 1X/DAY
     Route: 048
     Dates: start: 20130403, end: 20130410
  6. TEGRETOL [Suspect]
     Indication: EPILEPSY
     Dosage: 0.2 G THREE TIMES DAILY
     Route: 048
     Dates: start: 20130223, end: 20130410
  7. FORTUM [Suspect]
     Indication: INFECTION
     Dosage: 2 G, 2X/DAY
     Route: 041
     Dates: start: 20130227, end: 20130307
  8. ZYPREXA [Suspect]
     Indication: MANIA
     Dosage: 7.5 MG, 1X/DAY
     Route: 048
     Dates: start: 20130228
  9. ZYPREXA [Suspect]
     Dosage: 10 MG, 1X/DAY
     Route: 048
     Dates: start: 20130304
  10. MYONAL [Suspect]
     Indication: MUSCLE TONE DISORDER
     Dosage: 50 MG, 2X/DAY
     Route: 048
     Dates: start: 20130301, end: 20130401
  11. LORAZEPAM [Suspect]
     Indication: ANXIETY
     Dosage: 0.5 MG TWICE DAILY
     Route: 048
     Dates: start: 20130304, end: 20130325
  12. BACLOFEN [Suspect]
     Indication: MUSCLE TONE DISORDER
     Dosage: 5 MG, 3X/DAY
     Route: 048
     Dates: start: 20130304, end: 20130327
  13. BACLOFEN [Suspect]
     Dosage: 5 MG, 2X/DAY
     Route: 048
     Dates: start: 20130327, end: 20130329

REACTIONS (1)
  - Hepatic function abnormal [Recovering/Resolving]
